FAERS Safety Report 24697131 (Version 1)
Quarter: 2024Q4

REPORT INFORMATION
  Report Type: Spontaneous
  Country: BR (occurrence: BR)
  Receive Date: 20241204
  Receipt Date: 20241204
  Transmission Date: 20250115
  Serious: Yes (Other)
  Sender: REGENERON
  Company Number: BR-ADIUM-BR-0879-20241129

PATIENT
  Age: 45 Year
  Sex: Female

DRUGS (1)
  1. LIBTAYO [Suspect]
     Active Substance: CEMIPLIMAB-RWLC
     Indication: Cervix cancer metastatic
     Dosage: 1 CYCLE EVERY 3 WEEKS
     Dates: start: 2024, end: 2024

REACTIONS (1)
  - Drug-induced liver injury [Recovering/Resolving]

NARRATIVE: CASE EVENT DATE: 20241110
